FAERS Safety Report 20833807 (Version 1)
Quarter: 2022Q2

REPORT INFORMATION
  Report Type: Spontaneous
  Country: US (occurrence: None)
  Receive Date: 20220513
  Receipt Date: 20220513
  Transmission Date: 20220721
  Serious: Yes (Disabling)
  Sender: FDA-Public Use
  Company Number: None

PATIENT
  Age: 66 Year
  Sex: Female
  Weight: 85.5 kg

DRUGS (17)
  1. LEVOFLOXACIN [Suspect]
     Active Substance: LEVOFLOXACIN
     Indication: Pneumonia
     Dosage: FREQUENCY : DAILY;?
     Route: 048
     Dates: start: 20210901, end: 20210918
  2. CRANBERRY [Concomitant]
     Active Substance: CRANBERRY
  3. D-Mannose powder [Concomitant]
  4. L-METHYLFOLATE [Concomitant]
  5. methylated B2, B6, B12 [Concomitant]
  6. VITAMIN D3 [Concomitant]
     Active Substance: CHOLECALCIFEROL
  7. CALCIUM [Concomitant]
     Active Substance: CALCIUM
  8. strontium bio-citrate [Concomitant]
  9. MK-7 [Concomitant]
  10. vaginal boric acid suppository [Concomitant]
  11. REPHRESH [Concomitant]
  12. Multivitamin/minerals [Concomitant]
  13. INULIN [Concomitant]
     Active Substance: INULIN
  14. PROBIOTICS NOS [Concomitant]
     Active Substance: PROBIOTICS NOS
  15. SIMETHICONE (DIMETHICONE) [Concomitant]
     Active Substance: DIMETHICONE
  16. PSEUDAFED [Concomitant]
  17. Flonase nasal spray [Concomitant]

REACTIONS (13)
  - Joint dislocation [None]
  - Joint hyperextension [None]
  - Tendon pain [None]
  - Therapy cessation [None]
  - Gait disturbance [None]
  - Fall [None]
  - Tendonitis [None]
  - Ligament laxity [None]
  - Cubital tunnel syndrome [None]
  - Pain [None]
  - Decreased activity [None]
  - Weight increased [None]
  - Depression [None]

NARRATIVE: CASE EVENT DATE: 20210918
